FAERS Safety Report 8130582-8 (Version None)
Quarter: 2012Q1

REPORT INFORMATION
  Report Type: 
  Country: None (occurrence: None)
  Receive Date: 20120211
  Receipt Date: 20120207
  Transmission Date: 20120608
  Serious: Yes (Other)
  Sender: FDA-Public Use
  Company Number: US-AMGEN-USASP2012003424

PATIENT
  Age: 79 Year
  Sex: Female

DRUGS (6)
  1. PROLIA [Suspect]
     Indication: OSTEOPOROSIS POSTMENOPAUSAL
     Dosage: 60 MG, UNK
     Route: 058
     Dates: start: 20110628, end: 20110628
  2. CALCIUM [Concomitant]
  3. VERAPAMIL [Concomitant]
  4. MULTI-VITAMINS [Concomitant]
  5. RANITIDINE [Concomitant]
  6. ASPIRIN [Concomitant]

REACTIONS (6)
  - GASTRITIS [None]
  - CEREBELLAR INFARCTION [None]
  - NAUSEA [None]
  - VOMITING [None]
  - HYPOACUSIS [None]
  - DIZZINESS [None]
